FAERS Safety Report 11319633 (Version 1)
Quarter: 2015Q3

REPORT INFORMATION
  Report Type: Spontaneous
  Country: FR (occurrence: None)
  Receive Date: 20150727
  Receipt Date: 20150727
  Transmission Date: 20151125
  Serious: Yes (Life-Threatening)
  Sender: FDA-Public Use
  Company Number: NSR_02159_2015

PATIENT

DRUGS (1)
  1. BACLOFEN (BACLOFEN) [Suspect]
     Active Substance: BACLOFEN
     Indication: PRODUCT USED FOR UNKNOWN INDICATION
     Dosage: DF INTRATHECAL
     Route: 037

REACTIONS (3)
  - Drug withdrawal syndrome [None]
  - Drug dose omission [None]
  - Delirium [None]
